FAERS Safety Report 14433893 (Version 1)
Quarter: 2018Q1

REPORT INFORMATION
  Report Type: Spontaneous
  Country: US (occurrence: US)
  Receive Date: 20180124
  Receipt Date: 20180124
  Transmission Date: 20180509
  Serious: No
  Sender: FDA-Public Use
  Company Number: US-SHIRE-US201710666

PATIENT
  Age: 35 Year
  Sex: Female

DRUGS (1)
  1. NATPARA (PARATHYROID HORMONE) [Suspect]
     Active Substance: PARATHYROID HORMONE
     Indication: HYPOPARATHYROIDISM
     Dosage: 25 ?G ALTERNATING WITH 50 MCG, 1X/DAY:QD
     Route: 050
     Dates: start: 20160318

REACTIONS (1)
  - Blood calcium abnormal [Unknown]

NARRATIVE: CASE EVENT DATE: 20160318
